FAERS Safety Report 5441584-4 (Version None)
Quarter: 2007Q3

REPORT INFORMATION
  Report Type: 
  Country: None (occurrence: None)
  Receive Date: 20070829
  Receipt Date: 20070813
  Transmission Date: 20080115
  Serious: Yes (Life-Threatening, Other)
  Sender: FDA-Public Use
  Company Number: DSA_30437_2007

PATIENT
  Sex: Female

DRUGS (2)
  1. TAVOR /00273201/ (TAVOR - LORAZEPAM) 2.5 MG [Suspect]
     Dosage: 60 MG 1X  ORAL
     Route: 048
     Dates: start: 20070812, end: 20070812
  2. ETHANOL (ALCOHOL) [Suspect]
     Dosage: ORAL
     Route: 048
     Dates: start: 20070812, end: 20070812

REACTIONS (4)
  - MULTIPLE DRUG OVERDOSE [None]
  - MYDRIASIS [None]
  - SUICIDE ATTEMPT [None]
  - TACHYCARDIA [None]
